FAERS Safety Report 7418908-1 (Version None)
Quarter: 2011Q2

REPORT INFORMATION
  Report Type: 
  Country: None (occurrence: None)
  Receive Date: 20110415
  Receipt Date: 20110404
  Transmission Date: 20111010
  Serious: Yes (Hospitalization)
  Sender: FDA-Public Use
  Company Number: FR-ELI_LILLY_AND_COMPANY-FR201102007518

PATIENT
  Sex: Male

DRUGS (1)
  1. CYMBALTA [Suspect]
     Indication: DEPRESSION
     Dosage: 60 MG, DAILY (1/D)
     Dates: end: 20101104

REACTIONS (10)
  - PRURITUS [None]
  - DIZZINESS [None]
  - LIVER DISORDER [None]
  - ABDOMINAL PAIN [None]
  - EOSINOPHILIA [None]
  - INFLUENZA [None]
  - LYMPHADENOPATHY [None]
  - ASTHENIA [None]
  - WEIGHT DECREASED [None]
  - BLOOD IMMUNOGLOBULIN E INCREASED [None]
